FAERS Safety Report 13708393 (Version 1)
Quarter: 2017Q2

REPORT INFORMATION
  Report Type: Spontaneous
  Country: US (occurrence: US)
  Receive Date: 20170630
  Receipt Date: 20170630
  Transmission Date: 20170830
  Serious: Yes (Other)
  Sender: FDA-Public Use
  Company Number: US-ELI_LILLY_AND_COMPANY-US201706008404

PATIENT
  Sex: Female

DRUGS (2)
  1. HUMULIN 70/30 [Suspect]
     Active Substance: INSULIN HUMAN
     Indication: TYPE 2 DIABETES MELLITUS
     Dosage: 38 U, BID
     Route: 058
     Dates: start: 2012
  2. HUMULIN 70/30 [Suspect]
     Active Substance: INSULIN HUMAN
     Indication: TYPE 2 DIABETES MELLITUS
     Dosage: 38 U, BID
     Route: 058

REACTIONS (3)
  - Tremor [Unknown]
  - Muscular weakness [Unknown]
  - Multiple sclerosis [Unknown]
